FAERS Safety Report 7061911-4 (Version None)
Quarter: 2010Q4

REPORT INFORMATION
  Report Type: 
  Country: None (occurrence: None)
  Receive Date: 20101026
  Receipt Date: 20101026
  Transmission Date: 20110411
  Serious: Yes (Other)
  Sender: FDA-Public Use
  Company Number: US-PFIZER INC-2010126319

PATIENT
  Sex: Female
  Weight: 81.179 kg

DRUGS (10)
  1. NORVASC [Suspect]
     Indication: HYPERTENSION
     Dosage: 5 MG, 1X/DAY
     Route: 048
  2. ACTOS [Concomitant]
     Indication: DIABETES MELLITUS
     Dosage: 45 MG, 1X/DAY
  3. GLIPIZIDE [Concomitant]
     Indication: DIABETES MELLITUS
     Dosage: 5 MG, 2X/DAY
  4. LANTUS [Concomitant]
     Indication: DIABETES MELLITUS
     Dosage: 40 UNITS, ONCE AT NIGHT
  5. LISINOPRIL [Concomitant]
     Dosage: 20 MG, 2X/DAY
  6. OMEPRAZOLE [Concomitant]
     Dosage: UNK
  7. SIMVASTATIN [Concomitant]
     Dosage: 40 MG, 1X/DAY
  8. VALSARTAN [Concomitant]
     Dosage: UNK
  9. ZETIA [Concomitant]
     Dosage: 10 MG, 1X/DAY
  10. XANAX [Concomitant]
     Dosage: 1 MG, 1X/DAY, AT NIGHT

REACTIONS (1)
  - BACK DISORDER [None]
